FAERS Safety Report 4285314-0 (Version None)
Quarter: 2004Q1

REPORT INFORMATION
  Report Type: 
  Country: None (occurrence: None)
  Receive Date: 20040204
  Receipt Date: 20040105
  Transmission Date: 20041129
  Serious: No
  Sender: FDA-Public Use
  Company Number: PHNU2004DE00450

PATIENT
  Sex: Female
  Weight: 76 kg

DRUGS (1)
  1. CO-DIOVAN [Suspect]
     Indication: HYPERTENSION
     Dosage: 1 DF, QD
     Route: 048
     Dates: start: 20030318, end: 20030401

REACTIONS (6)
  - ACUTE MYELOID LEUKAEMIA [None]
  - DIZZINESS [None]
  - HYPERHIDROSIS [None]
  - PALLOR [None]
  - PHLEBITIS [None]
  - URINARY RETENTION [None]
